FAERS Safety Report 5896948-1 (Version None)
Quarter: 2008Q3

REPORT INFORMATION
  Report Type: 
  Country: None (occurrence: None)
  Receive Date: 20080924
  Receipt Date: 20080707
  Transmission Date: 20090109
  Serious: Yes (Other)
  Sender: FDA-Public Use
  Company Number: US-ASTRAZENECA-2008UW01090

PATIENT
  Age: 15341 Day
  Sex: Male
  Weight: 104.3 kg

DRUGS (6)
  1. SEROQUEL [Suspect]
     Indication: AGITATION
     Route: 048
     Dates: start: 20060101, end: 20061101
  2. GEODON [Concomitant]
     Dates: start: 20060101
  3. RISPERDAL [Concomitant]
     Dates: start: 20070101
  4. ZYPREXA [Concomitant]
     Dates: start: 20070101
  5. BUSPAR [Concomitant]
  6. TRILEPTAL [Concomitant]
     Dates: start: 20060101

REACTIONS (5)
  - BLOOD CHOLESTEROL INCREASED [None]
  - BLOOD TRIGLYCERIDES INCREASED [None]
  - DIABETES MELLITUS [None]
  - DIABETIC KETOACIDOSIS [None]
  - HYPERTENSION [None]
